FAERS Safety Report 11979547 (Version 1)
Quarter: 2016Q1

REPORT INFORMATION
  Report Type: Report from Study
  Country: US (occurrence: US)
  Receive Date: 20160129
  Receipt Date: 20160129
  Transmission Date: 20160526
  Serious: No
  Sender: FDA-Public Use
  Company Number: US-ABBVIE-15K-163-1404297-00

PATIENT
  Age: 63 Year
  Sex: Female

DRUGS (1)
  1. HUMIRA [Suspect]
     Active Substance: ADALIMUMAB
     Indication: RHEUMATOID ARTHRITIS
     Route: 058
     Dates: start: 20150521

REACTIONS (5)
  - Mood swings [Unknown]
  - Paraesthesia [Unknown]
  - Menopausal symptoms [Unknown]
  - Hypoaesthesia [Unknown]
  - Hot flush [Unknown]

NARRATIVE: CASE EVENT DATE: 2015
